FAERS Safety Report 21463484 (Version 1)
Quarter: 2022Q4

REPORT INFORMATION
  Report Type: Spontaneous
  Country: MX (occurrence: MX)
  Receive Date: 20221017
  Receipt Date: 20221017
  Transmission Date: 20230112
  Serious: Yes (Other)
  Sender: FDA-Public Use
  Company Number: MX-BRISTOL-MYERS SQUIBB COMPANY-2022-121616

PATIENT
  Age: 14 Year

DRUGS (1)
  1. VIDAZA [Suspect]
     Active Substance: AZACITIDINE
     Indication: Myelodysplastic syndrome
     Dosage: DOSE: 4 CYCLES, DOSE UNKNOWN; FREQ: 4 CYCLES, FREQUENCY UNKNOWN
     Route: 042

REACTIONS (1)
  - Acute lymphocytic leukaemia [Unknown]
